FAERS Safety Report 9835619 (Version 1)
Quarter: 2014Q1

REPORT INFORMATION
  Report Type: Report from Study
  Country: US (occurrence: US)
  Receive Date: 20140122
  Receipt Date: 20140122
  Transmission Date: 20141002
  Serious: Yes (Death, Other)
  Sender: FDA-Public Use
  Company Number: US-PURDUE-USA-2014-0110493

PATIENT
  Age: 79 Year
  Sex: Female

DRUGS (1)
  1. OXY CR TAB [Suspect]
     Indication: PRODUCT USED FOR UNKNOWN INDICATION
     Route: 048

REACTIONS (4)
  - Liver injury [Fatal]
  - Intentional overdose [Fatal]
  - Unresponsive to stimuli [Unknown]
  - Aggression [Unknown]
